FAERS Safety Report 7768740-4 (Version None)
Quarter: 2011Q3

REPORT INFORMATION
  Report Type: 
  Country: None (occurrence: None)
  Receive Date: 20110922
  Receipt Date: 20101005
  Transmission Date: 20111222
  Serious: No
  Sender: FDA-Public Use
  Company Number: US-ASTRAZENECA-2010SE46899

PATIENT
  Age: 68 Year
  Sex: Male
  Weight: 63.5 kg

DRUGS (16)
  1. ALBUTEROL [Concomitant]
  2. PRILOSEC [Concomitant]
  3. SEROQUEL [Suspect]
     Indication: SLEEP DISORDER
     Route: 048
     Dates: start: 20050101, end: 20100901
  4. ATIVAN [Concomitant]
  5. ZYPREXA [Concomitant]
  6. TRAZODONE HCL [Concomitant]
  7. TRILEPTAL [Concomitant]
  8. GLUCOPHAGE [Concomitant]
     Indication: DIABETES MELLITUS
  9. COGENTIN [Concomitant]
  10. SEROQUEL [Suspect]
     Route: 048
     Dates: start: 20100901
  11. FOLIC ACID [Concomitant]
  12. SEROQUEL [Suspect]
     Route: 048
     Dates: start: 20100901
  13. POTASSIUM [Concomitant]
  14. SEROQUEL [Suspect]
     Indication: AGITATION
     Route: 048
     Dates: start: 20050101, end: 20100901
  15. DEPAKOTE [Concomitant]
  16. NOVANE [Concomitant]

REACTIONS (4)
  - THINKING ABNORMAL [None]
  - AGGRESSION [None]
  - WEIGHT DECREASED [None]
  - DRUG DOSE OMISSION [None]
